FAERS Safety Report 8998702 (Version 3)
Quarter: 2013Q1

REPORT INFORMATION
  Report Type: Spontaneous
  Country: US (occurrence: US)
  Receive Date: 20130103
  Receipt Date: 20130321
  Transmission Date: 20140127
  Serious: Yes (Other)
  Sender: FDA-Public Use
  Company Number: US-PFIZER INC-2012332913

PATIENT
  Age: 55 Year
  Sex: Female
  Weight: 76.2 kg

DRUGS (6)
  1. PREMPRO [Suspect]
     Indication: MENOPAUSAL SYMPTOMS
     Dosage: 0.3MG ESTROGENS CONJUGATED/ 1.5MG MEDROXYPROGESTERONE ACETATE
     Route: 048
     Dates: start: 20090907, end: 20101021
  2. PREMPRO [Suspect]
     Dosage: 0.45 ESTROGENS CONJUGATED/ 1.5 MEDROXYPROGESTERONE ACETATE
     Route: 048
     Dates: start: 20101022, end: 20101123
  3. PREMPRO [Suspect]
     Dosage: 0.625 ESTROGENS CONJUGATED/ 2.5 MEDROXYPROGESTERONE ACETATE, 1X/DAY
     Route: 048
     Dates: start: 20101124, end: 20121128
  4. SYNTHROID [Concomitant]
     Dosage: UNK
  5. METHOTREXATE [Concomitant]
     Indication: POLYARTHRITIS
     Dosage: UNK
  6. OMEPRAZOLE [Concomitant]
     Dosage: UNK, 1X/DAY

REACTIONS (3)
  - Muscle strain [Recovered/Resolved]
  - Vascular rupture [Recovered/Resolved]
  - Deep vein thrombosis [Recovered/Resolved]
